FAERS Safety Report 16625181 (Version 1)
Quarter: 2019Q3

REPORT INFORMATION
  Report Type: Spontaneous
  Country: US (occurrence: US)
  Receive Date: 20190724
  Receipt Date: 20190724
  Transmission Date: 20191004
  Serious: No
  Sender: FDA-Public Use
  Company Number: US-PFIZER INC-2019311707

PATIENT
  Age: 39 Year
  Sex: Female

DRUGS (3)
  1. LETROZOLE. [Suspect]
     Active Substance: LETROZOLE
     Dosage: UNK
  2. IBRANCE [Suspect]
     Active Substance: PALBOCICLIB
     Dosage: 125 MG, CYCLIC, [21 DAYS ON, 7 DAYS OFF]
     Route: 048
     Dates: start: 20190709, end: 2019
  3. IBRANCE [Suspect]
     Active Substance: PALBOCICLIB
     Indication: BREAST CANCER FEMALE
     Dosage: 125 MG, CYCLIC, [21 DAYS ON, 7 DAYS OFF]
     Route: 048
     Dates: start: 20190625, end: 2019

REACTIONS (4)
  - Pain in extremity [Unknown]
  - Skin exfoliation [Unknown]
  - Rash [Unknown]
  - Skin burning sensation [Unknown]

NARRATIVE: CASE EVENT DATE: 2019
